FAERS Safety Report 10354928 (Version 3)
Quarter: 2015Q2

REPORT INFORMATION
  Report Type: Spontaneous
  Country: US (occurrence: US)
  Receive Date: 20140731
  Receipt Date: 20150505
  Transmission Date: 20150821
  Serious: No
  Sender: FDA-Public Use
  Company Number: US-PFIZER INC-2014209820

PATIENT
  Age: 39 Year
  Sex: Female
  Weight: 79 kg

DRUGS (4)
  1. OMNICEF [Suspect]
     Active Substance: CEFDINIR
     Indication: CHRONIC SINUSITIS
     Dosage: 300 MG, 2X/DAY
     Dates: start: 201406, end: 201406
  2. PRENATAL VITAMINS [Concomitant]
     Active Substance: VITAMINS
     Dosage: UNK
  3. AZITHROMYCIN [Suspect]
     Active Substance: AZITHROMYCIN ANHYDROUS
     Indication: CHRONIC SINUSITIS
     Dosage: 250 MG, TWO TIMES A DAY FOR FIRST DAY
     Route: 048
     Dates: start: 201406, end: 201406
  4. AZITHROMYCIN [Suspect]
     Active Substance: AZITHROMYCIN ANHYDROUS
     Dosage: 250 MG, ONCE A DAY TIL THERAPY FOR CHRONIC SINUSITIS
     Route: 048
     Dates: start: 201406, end: 201406

REACTIONS (1)
  - Sinusitis [Unknown]

NARRATIVE: CASE EVENT DATE: 201406
